FAERS Safety Report 16699880 (Version 1)
Quarter: 2019Q3

REPORT INFORMATION
  Report Type: Report from Study
  Country: CA (occurrence: CA)
  Receive Date: 20190813
  Receipt Date: 20190813
  Transmission Date: 20191004
  Serious: Yes (Other)
  Sender: FDA-Public Use
  Company Number: PHHY2019CA189013

PATIENT
  Age: 72 Year
  Sex: Male

DRUGS (5)
  1. ENTRESTO [Suspect]
     Active Substance: SACUBITRIL\VALSARTAN
     Dosage: 1 DF (24 MG VALSARTAN /26 SACUBITRILMG), (13 TABLETS)K
     Route: 065
     Dates: start: 20160813, end: 20160826
  2. ENTRESTO [Suspect]
     Active Substance: SACUBITRIL\VALSARTAN
     Dosage: 1 DF (49 MG VALSARTAN /51 SACUBITRILMG), (2 TABLETS)
     Route: 065
     Dates: start: 20161115
  3. ENTRESTO [Suspect]
     Active Substance: SACUBITRIL\VALSARTAN
     Dosage: 1 DF (49 MG VALSARTAN /51 SACUBITRILMG), (3 TABLETS)
     Route: 065
     Dates: start: 20160916, end: 20161102
  4. ENTRESTO [Suspect]
     Active Substance: SACUBITRIL\VALSARTAN
     Indication: CARDIAC FAILURE
     Dosage: 1 DF (49 MG VALSARTAN /51 SACUBITRILMG), (2 TABLETS)
     Route: 065
     Dates: start: 20160826, end: 20160914
  5. ENTRESTO [Suspect]
     Active Substance: SACUBITRIL\VALSARTAN
     Dosage: 1 DF (49 MG VALSARTAN /51 SACUBITRILMG), (4 TABLETS)
     Route: 065
     Dates: start: 20161102, end: 20161115

REACTIONS (1)
  - Syncope [Recovered/Resolved]

NARRATIVE: CASE EVENT DATE: 20190607
